FAERS Safety Report 8801979 (Version 2)
Quarter: 2015Q1

REPORT INFORMATION
  Report Type: Report from Study
  Country: US (occurrence: US)
  Receive Date: 20120921
  Receipt Date: 20150309
  Transmission Date: 20150721
  Serious: Yes (Death)
  Sender: FDA-Public Use
  Company Number: US-ROCHE-1104131

PATIENT
  Sex: Male
  Weight: 56.75 kg

DRUGS (11)
  1. DIPHENHYDRAMINE [Concomitant]
     Active Substance: DIPHENHYDRAMINE
     Route: 042
  2. DEXAMETHASONE. [Concomitant]
     Active Substance: DEXAMETHASONE
     Route: 042
  3. AVASTIN [Suspect]
     Active Substance: BEVACIZUMAB
     Dosage: DIL IN 100ML OF 0.9% SALINE AS AN INFUSION
     Route: 042
     Dates: start: 20090403
  4. AVASTIN [Suspect]
     Active Substance: BEVACIZUMAB
     Dosage: DIL IN 100ML OF 0.9% SALINE AS AN INFUSION
     Route: 042
     Dates: start: 20090424
  5. FAMOTIDINE. [Concomitant]
     Active Substance: FAMOTIDINE
     Route: 042
  6. AVASTIN [Suspect]
     Active Substance: BEVACIZUMAB
     Indication: OESOPHAGEAL CARCINOMA
     Dosage: DILUTED IN 100ML OF 0.9% SALINE
     Route: 042
     Dates: start: 20090220
  7. AVASTIN [Suspect]
     Active Substance: BEVACIZUMAB
     Indication: LYMPHOMA
     Dosage: DIL IN 100ML OF 0.9% SALINE AS AN INFUSION
     Route: 042
     Dates: start: 20090313
  8. AVASTIN [Suspect]
     Active Substance: BEVACIZUMAB
     Dosage: DIL IN 100ML OF 0.9% SALINE AS AN INFUSION
     Route: 042
     Dates: start: 20090515
  9. ACETAMINOPHEN. [Concomitant]
     Active Substance: ACETAMINOPHEN
     Route: 048
  10. DOCETAXEL. [Concomitant]
     Active Substance: DOCETAXEL
     Route: 042
  11. ONDANSETRON [Concomitant]
     Active Substance: ONDANSETRON
     Route: 042

REACTIONS (4)
  - Infected skin ulcer [Unknown]
  - Off label use [Unknown]
  - Diarrhoea [Unknown]
  - Death [Fatal]
